FAERS Safety Report 17609411 (Version 1)
Quarter: 2020Q2

REPORT INFORMATION
  Report Type: Spontaneous
  Country: CA (occurrence: CA)
  Receive Date: 20200401
  Receipt Date: 20200401
  Transmission Date: 20200713
  Serious: Yes (Other)
  Sender: FDA-Public Use
  Company Number: NVSC2020CA087965

PATIENT
  Age: 33 Year
  Sex: Female
  Weight: 45 kg

DRUGS (9)
  1. TYKERB [Suspect]
     Active Substance: LAPATINIB DITOSYLATE
     Indication: PRODUCT USED FOR UNKNOWN INDICATION
     Dosage: UNK
     Route: 065
  2. TRASTUZUMAB. [Suspect]
     Active Substance: TRASTUZUMAB
     Indication: BREAST CANCER
     Dosage: 342 MG, Q3W
     Route: 042
  3. XELODA [Suspect]
     Active Substance: CAPECITABINE
     Indication: BREAST CANCER
     Dosage: UNK
     Route: 065
  4. PACLITAXEL. [Suspect]
     Active Substance: PACLITAXEL
     Indication: PRODUCT USED FOR UNKNOWN INDICATION
     Dosage: UNK (LIQUID)
     Route: 042
  5. XGEVA [Suspect]
     Active Substance: DENOSUMAB
     Indication: PRODUCT USED FOR UNKNOWN INDICATION
     Dosage: UNK (SIGNLE USE VIAL, PRESERVATIVE FREE)
     Route: 058
  6. CISPLATIN. [Concomitant]
     Active Substance: CISPLATIN
     Indication: PRODUCT USED FOR UNKNOWN INDICATION
     Dosage: UNK
     Route: 065
  7. DOXORUBICIN [Concomitant]
     Active Substance: DOXORUBICIN
     Indication: PRODUCT USED FOR UNKNOWN INDICATION
     Dosage: UNK  (SOLUTION FOR INTRAVENOUS)
     Route: 042
  8. EPIRUBICIN [Concomitant]
     Active Substance: EPIRUBICIN
     Indication: PRODUCT USED FOR UNKNOWN INDICATION
     Dosage: UNK (SOLUTION)
     Route: 042
  9. CYCLOPHOSPHAMIDE. [Concomitant]
     Active Substance: CYCLOPHOSPHAMIDE
     Indication: PRODUCT USED FOR UNKNOWN INDICATION
     Dosage: UNK
     Route: 065

REACTIONS (17)
  - Cough [Not Recovered/Not Resolved]
  - Eczema [Not Recovered/Not Resolved]
  - Back pain [Not Recovered/Not Resolved]
  - Malaise [Not Recovered/Not Resolved]
  - Muscle spasms [Not Recovered/Not Resolved]
  - Nasopharyngitis [Not Recovered/Not Resolved]
  - Pulmonary oedema [Not Recovered/Not Resolved]
  - Weight decreased [Not Recovered/Not Resolved]
  - Stomatitis [Not Recovered/Not Resolved]
  - Dyspnoea [Not Recovered/Not Resolved]
  - Thrombosis in device [Not Recovered/Not Resolved]
  - Injection site pain [Not Recovered/Not Resolved]
  - Nerve compression [Not Recovered/Not Resolved]
  - Sleep disorder [Not Recovered/Not Resolved]
  - Vomiting [Not Recovered/Not Resolved]
  - Chills [Not Recovered/Not Resolved]
  - Rash [Not Recovered/Not Resolved]
